FAERS Safety Report 6232675-9 (Version None)
Quarter: 2009Q2

REPORT INFORMATION
  Report Type: 
  Country: None (occurrence: None)
  Receive Date: 20090612
  Receipt Date: 20090612
  Transmission Date: 20091009
  Serious: Yes (Hospitalization)
  Sender: FDA-Public Use
  Company Number: None

PATIENT
  Age: 75 Year
  Sex: Female
  Weight: 74 kg

DRUGS (5)
  1. WARFARIN SODIUM [Suspect]
     Indication: INTRACRANIAL ANEURYSM
     Dosage: 8 MG Q48H PO
     Route: 048
  2. ASPIRIN [Suspect]
     Dosage: 81 MG QD PO
     Route: 048
  3. VYTORIN [Concomitant]
  4. TOPROL-XL [Concomitant]
  5. HYDROXYUREA [Concomitant]

REACTIONS (3)
  - FALL [None]
  - SUBDURAL HAEMORRHAGE [None]
  - TRAUMATIC BRAIN INJURY [None]
